FAERS Safety Report 4398211-7 (Version None)
Quarter: 2004Q3

REPORT INFORMATION
  Report Type: 
  Country: None (occurrence: None)
  Receive Date: 20040714
  Receipt Date: 20040714
  Transmission Date: 20050211
  Serious: Yes (Hospitalization)
  Sender: FDA-Public Use
  Company Number: None

PATIENT
  Age: 36 Year
  Sex: Male
  Weight: 182.8 kg

DRUGS (4)
  1. IBUPROFEN [Suspect]
  2. METFORMIN HCL [Concomitant]
  3. ALBUTEROL [Concomitant]
  4. EPHEDRINE [Concomitant]

REACTIONS (5)
  - ABDOMINAL PAIN UPPER [None]
  - FAECES DISCOLOURED [None]
  - FLUID INTAKE REDUCED [None]
  - GASTRIC ULCER [None]
  - OESOPHAGITIS [None]
